FAERS Safety Report 9535874 (Version 1)
Quarter: 2013Q2

REPORT INFORMATION
  Report Type: Spontaneous
  Country: US (occurrence: None)
  Receive Date: 20130507
  Receipt Date: 20130507
  Transmission Date: 20140414
  Serious: No
  Sender: FDA-Public Use
  Company Number: PHEH2012US024796

PATIENT
  Age: 76 Year
  Sex: Female

DRUGS (16)
  1. AFINITOR (RAD) UNKNOWN [Suspect]
     Indication: HEPATIC CANCER
     Dosage: 5 MG, DAILY, ORAL
     Route: 048
     Dates: start: 20111111, end: 20130105
  2. ATENOLOL (ATENOLOL) [Concomitant]
  3. CALCIUM +D /07511201 [Concomitant]
  4. VITAMN D (ERGOCALCIFEROL) [Concomitant]
  5. LISINOPRIL (LISINOPRIL) [Concomitant]
  6. ASPIRIN (ACETYLSALICYLIC ACID [Concomitant]
  7. SIMVASTATIN (SIMVASTATIN) [Concomitant]
  8. CLARITIN (LORATADINE) [Concomitant]
  9. METROCREAM (METRONIDAZOLE) [Concomitant]
  10. SANDOSTATIN LAS (OCTREOTIDE ACETATE) [Concomitant]
  11. AMLODIPINE BESYLATE (AMLODIPINE BESTILATE) TABLET, 5 MG [Concomitant]
  12. CLOBETASOOL (CLOBETASOL) [Concomitant]
  13. GLUCOTROL (GLIPIZIDE) [Concomitant]
  14. METFORMIN HYDROCHLORIDE) (METFORMIN HYDROCHLORIDE) TABLET [Concomitant]
  15. CLINDAMYCIN HYDROCHLORIDE (CLINDAMYCIN HYDROCHLORIDE) CAPSULE [Concomitant]
  16. CLINDAMYCIN HYDROCHLORIDE (CLINDAMYCIN HYDROCHLORIDE) [Concomitant]

REACTIONS (8)
  - Rash [None]
  - Oedema peripheral [None]
  - Infection [None]
  - Erythema [None]
  - Dermatitis bullous [None]
  - Dermatitis contact [None]
  - Cellulitis [None]
  - Blister [None]
